FAERS Safety Report 12046901 (Version 1)
Quarter: 2016Q1

REPORT INFORMATION
  Report Type: Spontaneous
  Country: TR (occurrence: TR)
  Receive Date: 20160208
  Receipt Date: 20160208
  Transmission Date: 20160526
  Serious: Yes (Other)
  Sender: FDA-Public Use
  Company Number: TR-VIIV HEALTHCARE LIMITED-TR2016GSK017882

PATIENT
  Age: 52 Year
  Sex: Female

DRUGS (2)
  1. ATROPINE. [Suspect]
     Active Substance: ATROPINE
     Dosage: 1 MG, UNK
     Route: 042
  2. LAMIVUDINE. [Suspect]
     Active Substance: LAMIVUDINE
     Indication: CHRONIC HEPATITIS B
     Dosage: UNK

REACTIONS (12)
  - Arrhythmia [Recovered/Resolved]
  - Hypotension [Recovered/Resolved]
  - Atrioventricular block second degree [Recovered/Resolved]
  - Dizziness [Unknown]
  - Bradycardia [Unknown]
  - Hepatomegaly [Unknown]
  - Nausea [Unknown]
  - Hypoaesthesia [Unknown]
  - Electrocardiogram QRS complex shortened [Recovered/Resolved]
  - Atrioventricular block first degree [Recovered/Resolved]
  - Palpitations [Unknown]
  - Electrocardiogram PR prolongation [Recovered/Resolved]
